FAERS Safety Report 6565934-0 (Version None)
Quarter: 2010Q1

REPORT INFORMATION
  Report Type: 
  Country: None (occurrence: None)
  Receive Date: 20100129
  Receipt Date: 20100129
  Transmission Date: 20100710
  Serious: No
  Sender: FDA-Public Use
  Company Number: None

PATIENT

DRUGS (2)
  1. GEBAUERS ASTRINGENT SPY [Suspect]
     Indication: LOCAL ANAESTHESIA
     Dates: start: 20091201
  2. GEBAUERS ASTRINGENT SPY [Suspect]
     Indication: LOCAL ANAESTHESIA
     Dates: start: 20091215

REACTIONS (2)
  - APPLICATION SITE BURN [None]
  - CHEMICAL BURN OF SKIN [None]
